FAERS Safety Report 15820004 (Version 1)
Quarter: 2019Q1

REPORT INFORMATION
  Report Type: Spontaneous
  Country: US (occurrence: US)
  Receive Date: 20190114
  Receipt Date: 20190114
  Transmission Date: 20190417
  Serious: No
  Sender: FDA-Public Use
  Company Number: US-BAYER-2019-008196

PATIENT
  Sex: Male

DRUGS (1)
  1. MIRALAX [Suspect]
     Active Substance: POLYETHYLENE GLYCOL 3350
     Indication: COLONOSCOPY
     Dosage: LARGE BOTTLE WITH 64 OUNCES OF GATORADE

REACTIONS (4)
  - Extra dose administered [Unknown]
  - Wrong technique in product usage process [Unknown]
  - Product use in unapproved indication [None]
  - Therapeutic response unexpected [None]
